FAERS Safety Report 6404283-8 (Version None)
Quarter: 2009Q4

REPORT INFORMATION
  Report Type: 
  Country: None (occurrence: None)
  Receive Date: 20091016
  Receipt Date: 20091006
  Transmission Date: 20100525
  Serious: Yes (Hospitalization)
  Sender: FDA-Public Use
  Company Number: B0435563A

PATIENT
  Sex: Female

DRUGS (3)
  1. LAMICTAL [Suspect]
     Indication: EPILEPSY
     Dosage: 100MG TWICE PER DAY
     Route: 048
     Dates: start: 20060101, end: 20060801
  2. RIVOTRIL [Concomitant]
     Indication: EPILEPSY
     Route: 065
  3. GARDENAL [Concomitant]
     Indication: EPILEPSY
     Route: 065

REACTIONS (14)
  - AMNESIA [None]
  - COAGULATION FACTOR DEFICIENCY [None]
  - DRUG RASH WITH EOSINOPHILIA AND SYSTEMIC SYMPTOMS [None]
  - GRAND MAL CONVULSION [None]
  - HEAD INJURY [None]
  - HEPATOCELLULAR INJURY [None]
  - HYPERTHERMIA [None]
  - PSYCHOMOTOR RETARDATION [None]
  - RHABDOMYOLYSIS [None]
  - STATUS EPILEPTICUS [None]
  - THROMBOCYTOPENIA [None]
  - THROMBOPHLEBITIS SUPERFICIAL [None]
  - TRAUMATIC HAEMATOMA [None]
  - VOMITING [None]
